FAERS Safety Report 8233986-8 (Version None)
Quarter: 2012Q1

REPORT INFORMATION
  Report Type: 
  Country: None (occurrence: None)
  Receive Date: 20120326
  Receipt Date: 20120314
  Transmission Date: 20120608
  Serious: Yes (Other)
  Sender: FDA-Public Use
  Company Number: US-RB-036539-12

PATIENT
  Age: 64 Year
  Sex: Male

DRUGS (1)
  1. MUCINEX D [Suspect]
     Indication: PRODUCT USED FOR UNKNOWN INDICATION
     Route: 048
     Dates: start: 20120302, end: 20120308

REACTIONS (3)
  - SWELLING FACE [None]
  - SALIVARY GLAND ENLARGEMENT [None]
  - DRY MOUTH [None]
